FAERS Safety Report 13286041 (Version 2)
Quarter: 2017Q1

REPORT INFORMATION
  Report Type: Report from Study
  Country: US (occurrence: US)
  Receive Date: 20170302
  Receipt Date: 20170320
  Transmission Date: 20170428
  Serious: No
  Sender: FDA-Public Use
  Company Number: US-ALEXION PHARMACEUTICALS INC.-A201701966

PATIENT
  Sex: Female
  Weight: 48.53 kg

DRUGS (1)
  1. SOLIRIS [Suspect]
     Active Substance: ECULIZUMAB
     Indication: HAEMOLYTIC URAEMIC SYNDROME
     Route: 042

REACTIONS (7)
  - Feeding disorder [Unknown]
  - Nausea [Unknown]
  - Weight decreased [Unknown]
  - Dysgeusia [Unknown]
  - Pyrexia [Unknown]
  - Bacterial abdominal infection [Not Recovered/Not Resolved]
  - Decreased appetite [Unknown]
